FAERS Safety Report 22375166 (Version 2)
Quarter: 2023Q2

REPORT INFORMATION
  Report Type: Report from Study
  Country: BR (occurrence: BR)
  Receive Date: 20230527
  Receipt Date: 20230530
  Transmission Date: 20230722
  Serious: Yes (Other)
  Sender: FDA-Public Use
  Company Number: BR-002147023-NVSC2023BR007635

PATIENT
  Sex: Female

DRUGS (2)
  1. COSENTYX [Suspect]
     Active Substance: SECUKINUMAB
     Indication: Product used for unknown indication
     Dosage: UNK, QW
     Route: 065
     Dates: start: 20221025, end: 20221120
  2. COSENTYX [Suspect]
     Active Substance: SECUKINUMAB
     Dosage: UNK, QMO
     Route: 065

REACTIONS (18)
  - Anaphylactic shock [Unknown]
  - Loss of consciousness [Unknown]
  - Arthralgia [Recovering/Resolving]
  - Skin lesion [Recovered/Resolved]
  - Scar [Not Recovered/Not Resolved]
  - Somnolence [Unknown]
  - Contrast media reaction [Unknown]
  - Swelling [Unknown]
  - Peripheral coldness [Unknown]
  - Drug hypersensitivity [Unknown]
  - Mouth swelling [Unknown]
  - Fatigue [Unknown]
  - Malaise [Unknown]
  - Aphonia [Unknown]
  - Throat tightness [Unknown]
  - Swelling face [Unknown]
  - Pallor [Unknown]
  - Nausea [Unknown]
